FAERS Safety Report 6886422-8 (Version None)
Quarter: 2010Q3

REPORT INFORMATION
  Report Type: 
  Country: None (occurrence: None)
  Receive Date: 20100729
  Receipt Date: 20090415
  Transmission Date: 20110219
  Serious: Yes (Other)
  Sender: FDA-Public Use
  Company Number: US-PFIZER INC-2009179722

PATIENT
  Sex: Male
  Weight: 63.502 kg

DRUGS (1)
  1. CELEBREX [Suspect]
     Indication: ARTHRITIS
     Dates: start: 19990101, end: 20060101

REACTIONS (2)
  - THROMBOSIS [None]
  - TRANSIENT ISCHAEMIC ATTACK [None]
